FAERS Safety Report 5052102-7 (Version None)
Quarter: 2006Q3

REPORT INFORMATION
  Report Type: 
  Country: None (occurrence: None)
  Receive Date: 20060711
  Receipt Date: 20060623
  Transmission Date: 20061208
  Serious: Yes (Other)
  Sender: FDA-Public Use
  Company Number: IT200606005013

PATIENT
  Age: 74 Year
  Sex: Female

DRUGS (9)
  1. GEMCITABINE HYDROCHLORIDE [Suspect]
     Indication: NON-HODGKIN'S LYMPHOMA
     Dosage: 1000 MG/M2, OTHER, INTRAVENOUS
     Route: 042
  2. RITUXIMAB (RITUXIMAB) [Concomitant]
  3. ACETAMINOPHEN [Concomitant]
  4. CHLORPHENAMINE (CHLORPHENAMINE) [Concomitant]
  5. OXALIPLATIN (OXALIPLATIN) [Concomitant]
  6. DEXTROS INFUSIO FLUID 5% (GLUCOSE) [Concomitant]
  7. IFOSFAMIDE [Concomitant]
  8. MESNA [Concomitant]
  9. GRANULOCYTE COLONY STIMULATING FACTOR (GRANULOCYTE COLONY STIMULATING [Concomitant]

REACTIONS (1)
  - ENCEPHALOPATHY [None]
